FAERS Safety Report 22288792 (Version 4)
Quarter: 2024Q4

REPORT INFORMATION
  Report Type: Report from Study
  Country: FR (occurrence: FR)
  Receive Date: 20230505
  Receipt Date: 20241128
  Transmission Date: 20250114
  Serious: Yes (Other)
  Sender: ABBVIE
  Company Number: FR-ABBVIE-4702477

PATIENT
  Age: 66 Year
  Sex: Female
  Weight: 62 kg

DRUGS (16)
  1. VENETOCLAX [Suspect]
     Active Substance: VENETOCLAX
     Indication: Chronic lymphocytic leukaemia
     Route: 048
     Dates: start: 20210726, end: 20230704
  2. VENETOCLAX [Suspect]
     Active Substance: VENETOCLAX
     Indication: Chronic lymphocytic leukaemia
     Route: 048
     Dates: start: 20210719, end: 20210725
  3. VENETOCLAX [Suspect]
     Active Substance: VENETOCLAX
     Indication: Chronic lymphocytic leukaemia
     Route: 048
     Dates: start: 20210707, end: 20210711
  4. VENETOCLAX [Suspect]
     Active Substance: VENETOCLAX
     Indication: Chronic lymphocytic leukaemia
     Route: 048
     Dates: start: 20210714, end: 20210718
  5. VENETOCLAX [Suspect]
     Active Substance: VENETOCLAX
     Indication: Chronic lymphocytic leukaemia
     Route: 048
     Dates: start: 20210712, end: 20210713
  6. XANAX [Concomitant]
     Active Substance: ALPRAZOLAM
     Indication: Anxiolytic therapy
     Dates: start: 2019
  7. XANAX [Concomitant]
     Active Substance: ALPRAZOLAM
     Indication: Anxiolytic therapy
     Dates: start: 2019
  8. ALPRAZOLAM [Concomitant]
     Active Substance: ALPRAZOLAM
     Indication: Anxiolytic therapy
     Dosage: LAST ADMIN DATE:2023
     Dates: start: 20230208
  9. NEBIVOLOL HYDROCHLORIDE [Concomitant]
     Active Substance: NEBIVOLOL HYDROCHLORIDE
     Indication: Product used for unknown indication
  10. TWYNSTA [Concomitant]
     Active Substance: AMLODIPINE BESYLATE\TELMISARTAN
     Indication: Hypertension
     Dosage: LAST ADMIN DATE:2023
     Dates: start: 20230208
  11. PERINDOPRIL ARGININE [Concomitant]
     Active Substance: PERINDOPRIL ARGININE
     Indication: Enzyme inhibition
     Dates: end: 20230208
  12. PERINDOPRIL ARGININE [Concomitant]
     Active Substance: PERINDOPRIL ARGININE
     Indication: Enzyme inhibition
  13. ABILIFY [Concomitant]
     Active Substance: ARIPIPRAZOLE
     Indication: Neuroleptic malignant syndrome
     Dosage: FORM STRENGTH: 5 MG?LAST ADMIN DATE:2023
     Dates: start: 20230213
  14. TEMESTA [Concomitant]
     Indication: Anxiolytic therapy
     Dosage: FORM STRENGTH: 1 MG?LAST ADMIN DATE:2023
     Dates: start: 20230213
  15. AMLODIPINE\TELMISARTAN [Concomitant]
     Active Substance: AMLODIPINE\TELMISARTAN
     Indication: Blood pressure management
     Dosage: 80/5MG
     Dates: start: 2023
  16. FERROUS SULFATE [Concomitant]
     Active Substance: FERROUS SULFATE
     Indication: Iron deficiency
     Dosage: FORM STRENGTH: 80 MG
     Dates: start: 20230504

REACTIONS (4)
  - Depression [Recovering/Resolving]
  - Weight decreased [Recovered/Resolved]
  - Hypertension [Not Recovered/Not Resolved]
  - Weight increased [Not Recovered/Not Resolved]

NARRATIVE: CASE EVENT DATE: 20220221
